FAERS Safety Report 4651654-6 (Version None)
Quarter: 2005Q2

REPORT INFORMATION
  Report Type: 
  Country: None (occurrence: None)
  Receive Date: 20050404
  Receipt Date: 20041102
  Transmission Date: 20051028
  Serious: No
  Sender: FDA-Public Use
  Company Number: USA041183052

PATIENT
  Age: 71 Year
  Sex: Female
  Weight: 91 kg

DRUGS (8)
  1. CYMBALTA [Suspect]
     Indication: DEPRESSION
     Dosage: 60 MG DAY
     Dates: start: 20041028
  2. GLUCOVANCE [Concomitant]
  3. LEVOXYL [Concomitant]
  4. BENICAR [Concomitant]
  5. LIPITOR [Concomitant]
  6. AMBIEN [Concomitant]
  7. TRAZODONE [Concomitant]
  8. ZESTRIL [Concomitant]

REACTIONS (1)
  - BLOOD GLUCOSE INCREASED [None]
